FAERS Safety Report 7703502-5 (Version None)
Quarter: 2011Q3

REPORT INFORMATION
  Report Type: 
  Country: None (occurrence: None)
  Receive Date: 20110823
  Receipt Date: 20110809
  Transmission Date: 20111222
  Serious: Yes (Hospitalization, Other)
  Sender: FDA-Public Use
  Company Number: US-ELI_LILLY_AND_COMPANY-US201011001040

PATIENT
  Sex: Female

DRUGS (19)
  1. HYDROCHLOROTHIAZIDE [Concomitant]
     Dosage: 25 MG, QD
  2. FOSAMAX [Concomitant]
     Indication: BONE DISORDER
  3. LISINOPRIL [Concomitant]
     Dosage: 20 MG, QD
  4. LEVOTHYROXINE SODIUM [Concomitant]
     Dosage: 112 UG, QD
  5. VITAMIN D [Concomitant]
     Dosage: 2000 IU, UNK
  6. FORTEO [Suspect]
     Indication: OSTEOPOROSIS
     Dosage: 20 UG, DAILY (1/D)
  7. CARVEDILOL [Concomitant]
     Dosage: 3.125 MG, BID
  8. BIOFLEX                            /00943602/ [Concomitant]
  9. LORTAB [Concomitant]
     Indication: PAIN
     Dosage: 7.5 MG, QID
  10. PRESERVISION LUTEIN EYE VITA.+MIN.SUP.SOFTG. [Concomitant]
     Dosage: UNK, QD
  11. FORTEO [Suspect]
     Dosage: 20 UG, QD
  12. CELEBREX [Concomitant]
     Dosage: 200 MG, QD
  13. CALTRATE + D [Concomitant]
     Dosage: UNK, BID
  14. FISH OIL [Concomitant]
     Dosage: 1200 MG, QD
  15. OMEPRAZOLE [Concomitant]
  16. OXYBUTYNIN [Concomitant]
     Dosage: 5 MG, QID
  17. SIMAVASTATIN [Concomitant]
     Dosage: 10 MG, EACH EVENING
  18. STOOL SOFTENER [Concomitant]
  19. CETIRIZINE HCL [Concomitant]
     Dosage: 10 MG, EACH EVENING

REACTIONS (4)
  - TRANSIENT ISCHAEMIC ATTACK [None]
  - DEVICE BREAKAGE [None]
  - FACIAL ASYMMETRY [None]
  - SPEECH DISORDER [None]
